FAERS Safety Report 4604072-0 (Version None)
Quarter: 2005Q1

REPORT INFORMATION
  Report Type: 
  Country: None (occurrence: None)
  Receive Date: 20050309
  Receipt Date: 20050309
  Transmission Date: 20050727
  Serious: Yes (Hospitalization)
  Sender: FDA-Public Use
  Company Number: None

PATIENT
  Age: 76 Year
  Sex: Female
  Weight: 55.4 kg

DRUGS (1)
  1. ZYLOPRIM [Suspect]
     Indication: GOUT

REACTIONS (3)
  - DROOLING [None]
  - DYSPHAGIA [None]
  - STEVENS-JOHNSON SYNDROME [None]
